FAERS Safety Report 8235583 (Version 2)
Quarter: 2013Q1

REPORT INFORMATION
  Report Type: Spontaneous
  Country: ID (occurrence: ID)
  Receive Date: 20111108
  Receipt Date: 20130218
  Transmission Date: 20140127
  Serious: Yes (Death)
  Sender: FDA-Public Use
  Company Number: PHHY2011ID097501

PATIENT
  Age: 52 Year
  Sex: Female

DRUGS (1)
  1. GLIVEC [Suspect]
     Dosage: 600 MG, DAILY
     Route: 048

REACTIONS (1)
  - Death [Fatal]
